FAERS Safety Report 18657425 (Version 1)
Quarter: 2020Q4

REPORT INFORMATION
  Report Type: Report from Study
  Country: None (occurrence: ES)
  Receive Date: 20201224
  Receipt Date: 20201224
  Transmission Date: 20210114
  Serious: Yes (Hospitalization)
  Sender: FDA-Public Use
  Company Number: ES-ABBVIE-20K-144-3700119-00

PATIENT
  Age: 78 Year
  Sex: Male

DRUGS (2)
  1. DUODOPA [Suspect]
     Active Substance: CARBIDOPA\LEVODOPA
     Dosage: DOSE DECREASED
     Route: 050
     Dates: start: 202012
  2. DUODOPA [Suspect]
     Active Substance: CARBIDOPA\LEVODOPA
     Indication: PRODUCT USED FOR UNKNOWN INDICATION
     Route: 050
     Dates: start: 20201126, end: 202012

REACTIONS (7)
  - Ischaemic stroke [Unknown]
  - Dysphagia [Unknown]
  - Bedridden [Unknown]
  - Disorientation [Unknown]
  - Off label use [Unknown]
  - Anal incontinence [Unknown]
  - Hallucination [Unknown]

NARRATIVE: CASE EVENT DATE: 2020
